FAERS Safety Report 11125817 (Version 1)
Quarter: 2015Q2

REPORT INFORMATION
  Report Type: Report from Study
  Country: US (occurrence: US)
  Receive Date: 20150520
  Receipt Date: 20150520
  Transmission Date: 20150821
  Serious: Yes (Hospitalization)
  Sender: FDA-Public Use
  Company Number: US-SA-2015SA067284

PATIENT
  Age: 58 Year
  Sex: Male

DRUGS (1)
  1. AUBAGIO [Suspect]
     Active Substance: TERIFLUNOMIDE
     Indication: MULTIPLE SCLEROSIS
     Route: 048
     Dates: start: 20150419

REACTIONS (8)
  - Hernia repair [Unknown]
  - Cough [Unknown]
  - Condition aggravated [Unknown]
  - Renal disorder [Recovering/Resolving]
  - Viral infection [Unknown]
  - Micturition disorder [Recovering/Resolving]
  - Muscle spasticity [Unknown]
  - Dry mouth [Unknown]

NARRATIVE: CASE EVENT DATE: 20150512
